FAERS Safety Report 16571747 (Version 3)
Quarter: 2019Q4

REPORT INFORMATION
  Report Type: Report from Study
  Country: US (occurrence: US)
  Receive Date: 20190715
  Receipt Date: 20191214
  Transmission Date: 20200122
  Serious: No
  Sender: FDA-Public Use
  Company Number: PHEH2019US028832

PATIENT
  Sex: Male

DRUGS (1)
  1. GLATOPA [Suspect]
     Active Substance: GLATIRAMER ACETATE
     Indication: MULTIPLE SCLEROSIS
     Route: 065

REACTIONS (6)
  - Palpitations [Unknown]
  - Pyrexia [Unknown]
  - Injection site swelling [Unknown]
  - Injection site mass [Unknown]
  - Injection site scar [Unknown]
  - Injection site erythema [Unknown]
